FAERS Safety Report 22789807 (Version 2)
Quarter: 2023Q4

REPORT INFORMATION
  Report Type: Spontaneous
  Country: US (occurrence: US)
  Receive Date: 20230804
  Receipt Date: 20231003
  Transmission Date: 20240109
  Serious: No
  Sender: FDA-Public Use
  Company Number: US-PFIZER INC-202300267194

PATIENT
  Age: 75 Year
  Sex: Female
  Weight: 64.86 kg

DRUGS (3)
  1. IBRANCE [Suspect]
     Active Substance: PALBOCICLIB
     Indication: Breast cancer metastatic
     Dosage: FOR 21 DAYS AND OFF FOR 7 DAYS
     Dates: end: 20230801
  2. EXEMESTANE [Concomitant]
     Active Substance: EXEMESTANE
     Indication: Neoplasm malignant
     Dosage: 0.5 MG, DAILY
     Route: 048
     Dates: start: 2023
  3. ZOMETA [Concomitant]
     Active Substance: ZOLEDRONIC ACID
     Dosage: DOSE UNKNOWN, ONCE A MONTH BUT NOW GETTING ONCE A WEEK
     Route: 042
     Dates: start: 2023

REACTIONS (1)
  - Neoplasm progression [Unknown]
